FAERS Safety Report 4682445-8 (Version None)
Quarter: 2005Q2

REPORT INFORMATION
  Report Type: 
  Country: None (occurrence: None)
  Receive Date: 20050606
  Receipt Date: 20040601
  Transmission Date: 20051028
  Serious: Yes (Death, Hospitalization)
  Sender: FDA-Public Use
  Company Number: ES-ROCHE-369493

PATIENT
  Age: 76 Year
  Sex: Male
  Weight: 72 kg

DRUGS (6)
  1. CAPECITABINE [Suspect]
     Indication: COLON CANCER
     Dosage: GIVEN FROM DAY 1 TO DAY 14 OF A THREE WEEK CYCLE.
     Route: 048
     Dates: start: 20040517, end: 20040517
  2. OXALIPLATIN [Suspect]
     Indication: COLON CANCER
     Route: 042
     Dates: start: 20040517, end: 20040531
  3. ORALDINE [Concomitant]
     Route: 048
     Dates: start: 20040517
  4. MYCOSTATIN [Concomitant]
     Indication: PROPHYLAXIS
     Route: 048
     Dates: start: 20040517
  5. MOTILIUM [Concomitant]
     Dosage: DAILY.
     Route: 048
     Dates: start: 20040517
  6. AAS [Concomitant]
     Route: 048

REACTIONS (3)
  - DIARRHOEA [None]
  - RENAL FAILURE ACUTE [None]
  - VOMITING [None]
